FAERS Safety Report 9842339 (Version 1)
Quarter: 2014Q1

REPORT INFORMATION
  Report Type: Report from Study
  Country: CN (occurrence: CN)
  Receive Date: 20140124
  Receipt Date: 20140124
  Transmission Date: 20141002
  Serious: Yes (Death)
  Sender: FDA-Public Use
  Company Number: CN-PFIZER INC-2014018898

PATIENT
  Age: 53 Year
  Sex: Female
  Weight: 56 kg

DRUGS (3)
  1. CARBOPLATIN [Suspect]
     Indication: NON-SMALL CELL LUNG CANCER
     Dosage: 562 MG, EVERY 3 WEEKS
     Route: 042
     Dates: start: 20131022, end: 20131022
  2. PEMETREXED [Suspect]
     Indication: NON-SMALL CELL LUNG CANCER
     Dosage: 787 MG, DAY 1 EVERY 3 WEEKS
     Route: 042
     Dates: start: 20131022, end: 20131022
  3. CRIZOTINIB [Suspect]
     Indication: NON-SMALL CELL LUNG CANCER
     Dosage: 200 MG, 2X/DAY
     Route: 048
     Dates: start: 20131113

REACTIONS (1)
  - Death [Fatal]
